FAERS Safety Report 8792739 (Version 2)
Quarter: 2015Q1

REPORT INFORMATION
  Report Type: Report from Study
  Country: US (occurrence: US)
  Receive Date: 20120918
  Receipt Date: 20150309
  Transmission Date: 20150721
  Serious: Yes (Death)
  Sender: FDA-Public Use
  Company Number: US-ROCHE-1123166

PATIENT
  Sex: Male

DRUGS (24)
  1. AVASTIN [Suspect]
     Active Substance: BEVACIZUMAB
     Indication: METASTASES TO LIVER
     Route: 042
  2. 5-FLUOROURACIL [Concomitant]
     Active Substance: FLUOROURACIL
     Route: 042
  3. AVASTIN [Suspect]
     Active Substance: BEVACIZUMAB
     Indication: COLON CANCER
     Route: 042
     Dates: start: 20100414
  4. IRINOTECAN [Concomitant]
     Active Substance: IRINOTECAN
     Route: 042
  5. NEULASTA [Concomitant]
     Active Substance: PEGFILGRASTIM
     Route: 065
  6. AVASTIN [Suspect]
     Active Substance: BEVACIZUMAB
     Route: 042
  7. OXALIPLATIN. [Concomitant]
     Active Substance: OXALIPLATIN
     Route: 042
  8. BENADRYL [Concomitant]
     Active Substance: DIPHENHYDRAMINE HYDROCHLORIDE
     Route: 065
  9. LEUCOVORIN [Concomitant]
     Active Substance: LEUCOVORIN
     Route: 042
  10. LEUCOVORIN [Concomitant]
     Active Substance: LEUCOVORIN
     Route: 042
  11. AVASTIN [Suspect]
     Active Substance: BEVACIZUMAB
     Route: 042
  12. AVASTIN [Suspect]
     Active Substance: BEVACIZUMAB
     Route: 042
  13. OXALIPLATIN. [Concomitant]
     Active Substance: OXALIPLATIN
     Route: 042
  14. FOLINIC ACID [Concomitant]
     Active Substance: LEUCOVORIN
  15. ALOXI [Concomitant]
     Active Substance: PALONOSETRON HYDROCHLORIDE
     Route: 042
  16. DECADRON [Concomitant]
     Active Substance: DEXAMETHASONE
     Route: 042
  17. LEUCOVORIN [Concomitant]
     Active Substance: LEUCOVORIN
     Route: 042
  18. AVASTIN [Suspect]
     Active Substance: BEVACIZUMAB
     Route: 042
  19. 5-FLUOROURACIL [Concomitant]
     Active Substance: FLUOROURACIL
     Route: 042
  20. 5-FLUOROURACIL [Concomitant]
     Active Substance: FLUOROURACIL
     Route: 042
  21. ATROPINE [Concomitant]
     Active Substance: ATROPINE
     Route: 042
  22. LEUCOVORIN [Concomitant]
     Active Substance: LEUCOVORIN
     Route: 042
  23. DEXAMETHASONE. [Concomitant]
     Active Substance: DEXAMETHASONE
     Route: 042
  24. ANZEMET [Concomitant]
     Active Substance: DOLASETRON MESYLATE
     Route: 042

REACTIONS (4)
  - Neuropathy peripheral [Recovered/Resolved]
  - Death [Fatal]
  - Nausea [Recovered/Resolved]
  - Temperature intolerance [Recovered/Resolved]
